FAERS Safety Report 18600820 (Version 2)
Quarter: 2020Q4

REPORT INFORMATION
  Report Type: Spontaneous
  Country: US (occurrence: US)
  Receive Date: 20201210
  Receipt Date: 20201223
  Transmission Date: 20210114
  Serious: No
  Sender: FDA-Public Use
  Company Number: US-009507513-2012USA003879

PATIENT
  Age: 19 Year
  Sex: Female
  Weight: 142.4 kg

DRUGS (2)
  1. FOLIC ACID. [Concomitant]
     Active Substance: FOLIC ACID
  2. NEXPLANON [Suspect]
     Active Substance: ETONOGESTREL
     Dosage: 1 IMPLANT
     Route: 059
     Dates: start: 2014, end: 20201007

REACTIONS (3)
  - Weight increased [Unknown]
  - Incorrect product administration duration [Unknown]
  - Menstruation delayed [Unknown]

NARRATIVE: CASE EVENT DATE: 2017
